FAERS Safety Report 7989495-4 (Version None)
Quarter: 2011Q4

REPORT INFORMATION
  Report Type: 
  Country: None (occurrence: None)
  Receive Date: 20111219
  Receipt Date: 20110524
  Transmission Date: 20120403
  Serious: No
  Sender: FDA-Public Use
  Company Number: US-ASTRAZENECA-2011SE32123

PATIENT
  Sex: Female

DRUGS (4)
  1. PRAVASTATIN [Concomitant]
  2. LIPITOR [Concomitant]
  3. CRESTOR [Suspect]
     Route: 048
  4. CRESTOR [Suspect]
     Route: 048

REACTIONS (1)
  - ACCIDENT AT WORK [None]
